FAERS Safety Report 8202842-3 (Version None)
Quarter: 2012Q1

REPORT INFORMATION
  Report Type: 
  Country: None (occurrence: None)
  Receive Date: 20120312
  Receipt Date: 20120312
  Transmission Date: 20120608
  Serious: Yes (Life-Threatening)
  Sender: FDA-Public Use
  Company Number: None

PATIENT
  Age: 59 Year
  Sex: Female
  Weight: 103.87 kg

DRUGS (2)
  1. ALLOPURINOL [Suspect]
     Indication: GOUT
     Dosage: 1 TABLET
     Route: 048
     Dates: start: 20110909, end: 20111014
  2. ALLOPURINOL [Concomitant]
     Dosage: 1 TABLET
     Route: 048
     Dates: start: 20110909, end: 20111014

REACTIONS (2)
  - STEVENS-JOHNSON SYNDROME [None]
  - ALOPECIA [None]
